FAERS Safety Report 5003995-0 (Version None)
Quarter: 2006Q2

REPORT INFORMATION
  Report Type: 
  Country: None (occurrence: None)
  Receive Date: 20060517
  Receipt Date: 20050407
  Transmission Date: 20061013
  Serious: Yes (Other)
  Sender: FDA-Public Use
  Company Number: US-AVENTIS-200512913US

PATIENT
  Sex: Male
  Weight: 105.9 kg

DRUGS (8)
  1. KETEK [Suspect]
     Indication: EAR INFECTION
     Route: 048
     Dates: start: 20050211, end: 20050214
  2. KETEK [Suspect]
     Indication: SINUSITIS
     Route: 048
     Dates: start: 20050211, end: 20050214
  3. DARVOCET-N 100 [Suspect]
     Dosage: DOSE: UNK
  4. PROFEN II [Concomitant]
     Dosage: DOSE: 1 TABLET
     Route: 048
  5. NASONEX [Concomitant]
     Dosage: DOSE: 1-2 SPRAYS
     Route: 045
  6. ROBITUSSIN A-C /OLD FORM/ [Concomitant]
     Dosage: DOSE: 1-2 TEASPOONS Q4-6 HOURS
     Route: 048
  7. PSEUDO-GUAIFENESIN [Concomitant]
     Dosage: DOSE: 45-800
  8. ZYRTEC [Concomitant]

REACTIONS (28)
  - ALANINE AMINOTRANSFERASE INCREASED [None]
  - ANOREXIA [None]
  - ASPARTATE AMINOTRANSFERASE INCREASED [None]
  - ATELECTASIS [None]
  - BILIRUBIN CONJUGATED INCREASED [None]
  - BILIRUBINURIA [None]
  - BLOOD ALKALINE PHOSPHATASE INCREASED [None]
  - CHROMATURIA [None]
  - FATIGUE [None]
  - GAMMA-GLUTAMYLTRANSFERASE INCREASED [None]
  - HEPATIC STEATOSIS [None]
  - HEPATITIS [None]
  - HEPATOCELLULAR DAMAGE [None]
  - HYPERBILIRUBINAEMIA [None]
  - HYPERSENSITIVITY [None]
  - INFLUENZA LIKE ILLNESS [None]
  - JAUNDICE [None]
  - MALAISE [None]
  - MUSCULOSKELETAL DISCOMFORT [None]
  - MYALGIA [None]
  - NAUSEA [None]
  - NIGHT SWEATS [None]
  - PRURITUS [None]
  - RASH [None]
  - RENAL CYST [None]
  - SERUM FERRITIN INCREASED [None]
  - SINUSITIS [None]
  - WEIGHT INCREASED [None]
